FAERS Safety Report 8587051-0 (Version None)
Quarter: 2012Q3

REPORT INFORMATION
  Report Type: 
  Country: None (occurrence: None)
  Receive Date: 20120810
  Receipt Date: 20120627
  Transmission Date: 20120928
  Serious: No
  Sender: FDA-Public Use
  Company Number: US-ABBOTT-12P-163-0950306-00

PATIENT
  Age: 26 Year
  Sex: Female

DRUGS (3)
  1. REYATAZ [Suspect]
     Indication: ANTIRETROVIRAL THERAPY
     Dates: start: 20111024
  2. TRUVADA [Suspect]
     Indication: ANTIRETROVIRAL THERAPY
     Dates: start: 20111024
  3. NORVIR [Suspect]
     Indication: ANTIRETROVIRAL THERAPY
     Route: 048
     Dates: start: 20111024

REACTIONS (1)
  - PLACENTA PRAEVIA [None]
